FAERS Safety Report 25616649 (Version 2)
Quarter: 2025Q3

REPORT INFORMATION
  Report Type: Spontaneous
  Country: US (occurrence: US)
  Receive Date: 20250729
  Receipt Date: 20250805
  Transmission Date: 20251021
  Serious: Yes (Hospitalization, Other)
  Sender: ADVANZ PHARMA
  Company Number: US-MLMSERVICE-20250710-PI573983-00095-1

PATIENT

DRUGS (1)
  1. HYDROXYCHLOROQUINE [Suspect]
     Active Substance: HYDROXYCHLOROQUINE
     Indication: Systemic lupus erythematosus

REACTIONS (13)
  - Encephalopathy [Recovering/Resolving]
  - Catatonia [Recovering/Resolving]
  - Pyrexia [Recovering/Resolving]
  - Muscle rigidity [Recovering/Resolving]
  - Hypophagia [Recovering/Resolving]
  - Hyporesponsive to stimuli [Recovering/Resolving]
  - Sinus tachycardia [Recovering/Resolving]
  - Swelling [Recovering/Resolving]
  - Mutism [Recovering/Resolving]
  - Hyperreflexia [Recovering/Resolving]
  - Paranoia [Recovering/Resolving]
  - Insomnia [Recovering/Resolving]
  - Dyskinesia [Recovering/Resolving]
